FAERS Safety Report 6534666-7 (Version None)
Quarter: 2010Q1

REPORT INFORMATION
  Report Type: 
  Country: None (occurrence: None)
  Receive Date: 20100112
  Receipt Date: 20100104
  Transmission Date: 20100710
  Serious: Yes (Hospitalization)
  Sender: FDA-Public Use
  Company Number: GXKR2009DE10685

PATIENT
  Sex: Female
  Weight: 76 kg

DRUGS (15)
  1. METHOTREXATE (NGX) [Suspect]
     Indication: PSORIASIS
     Dosage: 10 MG, QW
     Route: 048
     Dates: start: 20081016, end: 20090723
  2. DITHRANOL [Concomitant]
     Indication: PSORIASIS
     Dosage: UNK
     Route: 065
     Dates: start: 19951201, end: 19951201
  3. DITHRANOL [Concomitant]
     Dosage: UNK
     Dates: start: 20000101, end: 20001201
  4. CETYLPYRIDINIUM CHLORIDE [Concomitant]
     Indication: NASOPHARYNGITIS
     Dosage: UNK
     Dates: start: 20081002, end: 20081015
  5. CETYLPYRIDINIUM CHLORIDE [Concomitant]
     Dosage: UNK
     Route: 065
     Dates: start: 20081227, end: 20081228
  6. AMBROXOL [Concomitant]
     Indication: NASOPHARYNGITIS
     Dosage: UNK
     Route: 065
     Dates: start: 20081003, end: 20081015
  7. ACETYLCYSTEINE [Concomitant]
     Indication: NASOPHARYNGITIS
     Dosage: UNK
     Route: 065
     Dates: start: 20081229, end: 20090101
  8. MYRTOL [Concomitant]
     Indication: NASOPHARYNGITIS
     Dosage: UNK
     Route: 065
     Dates: start: 20090609, end: 20090621
  9. FUMARIC ACID [Concomitant]
     Indication: PSORIASIS
     Dosage: UNK
     Route: 065
     Dates: start: 19990101, end: 19991201
  10. AMOXICILLIN [Concomitant]
     Indication: BRONCHITIS
     Dosage: 1000 MG, TID
     Route: 048
     Dates: start: 20090128, end: 20090204
  11. AMOXICILLIN [Concomitant]
     Indication: NASOPHARYNGITIS
  12. ETORICOXIB [Concomitant]
     Indication: PAIN IN EXTREMITY
     Dosage: 60 MG, QD
     Dates: start: 20090317, end: 20090324
  13. AMLODIPINE MALEATE [Concomitant]
     Indication: HYPERTENSION
     Dosage: 2.5 MG, QD
     Route: 065
     Dates: start: 20090629
  14. PARACETAMOL [Concomitant]
     Indication: MYALGIA
     Dosage: 500 MG, TID
     Route: 065
     Dates: start: 20090728, end: 20090730
  15. NICOVIT [Concomitant]
     Indication: ANTIBIOTIC PROPHYLAXIS
     Dosage: 300 MG, QD
     Dates: start: 20080815, end: 20090501

REACTIONS (1)
  - DIVERTICULITIS [None]
